FAERS Safety Report 13960336 (Version 3)
Quarter: 2017Q4

REPORT INFORMATION
  Report Type: Spontaneous
  Country: FR (occurrence: FR)
  Receive Date: 20170912
  Receipt Date: 20171103
  Transmission Date: 20180320
  Serious: Yes (Hospitalization, Other)
  Sender: FDA-Public Use
  Company Number: FR-ASTELLAS-2017US034545

PATIENT
  Age: 58 Year
  Sex: Male

DRUGS (6)
  1. PROGRAF [Suspect]
     Active Substance: TACROLIMUS\TACROLIMUS ANHYDROUS
     Indication: PRODUCT USED FOR UNKNOWN INDICATION
     Dosage: 3.5 MG, TWICE DAILY (IN THE MORNING AND IN THE EVENING VIA NASOGASTRIC TUBE)
     Route: 048
  2. PROGRAF [Suspect]
     Active Substance: TACROLIMUS\TACROLIMUS ANHYDROUS
     Dosage: 3 MG, TWICE DAILY (IN THE MORNING AND IN THE EVENING)
     Route: 048
  3. PROGRAF [Suspect]
     Active Substance: TACROLIMUS\TACROLIMUS ANHYDROUS
     Dosage: 2.5 MG, TWICE DAILY (IN THE MORNING AND IN THE EVENING)
     Route: 048
  4. CELLCEPT [Concomitant]
     Active Substance: MYCOPHENOLATE MOFETIL\MYCOPHENOLATE MOFETIL HYDROCHLORIDE
     Indication: PRODUCT USED FOR UNKNOWN INDICATION
     Dosage: UNK UNK, UNKNOWN FREQ.
     Route: 065
  5. ADVAGRAF [Suspect]
     Active Substance: TACROLIMUS
     Indication: PRODUCT USED FOR UNKNOWN INDICATION
     Dosage: 6 MG, ONCE DAILY (MORNING)
     Route: 048
  6. PROGRAF [Suspect]
     Active Substance: TACROLIMUS\TACROLIMUS ANHYDROUS
     Dosage: 1/5 OF THE ORAL DOSE EITHER 0.8 MG EVERY 24 HOURS THEN 0.6 MG, UNKNOWN FREQUENCY
     Route: 042
     Dates: start: 20170825

REACTIONS (12)
  - Septic shock [Unknown]
  - Renal cancer [Unknown]
  - Intentional product misuse [Unknown]
  - Acute respiratory distress syndrome [Unknown]
  - Bronchopneumopathy [Unknown]
  - Staphylococcal infection [Unknown]
  - Type 1 diabetes mellitus [Unknown]
  - Overdose [Unknown]
  - Renal failure [Unknown]
  - Hypertension [Unknown]
  - Superinfection [Unknown]
  - Hypercholesterolaemia [Unknown]

NARRATIVE: CASE EVENT DATE: 2009
